FAERS Safety Report 4791095-4 (Version None)
Quarter: 2005Q4

REPORT INFORMATION
  Report Type: 
  Country: None (occurrence: None)
  Receive Date: 20051005
  Receipt Date: 20050916
  Transmission Date: 20060501
  Serious: Yes (Hospitalization)
  Sender: FDA-Public Use
  Company Number: EWC050945900

PATIENT
  Age: 48 Year
  Sex: Female
  Weight: 54 kg

DRUGS (1)
  1. HUMULIN 70/30 [Suspect]
     Indication: DIABETES MELLITUS
     Dosage: 26 U/2 DAY
     Dates: start: 20050601

REACTIONS (4)
  - BLOOD GLUCOSE INCREASED [None]
  - DIABETIC FOOT [None]
  - DRUG INEFFECTIVE [None]
  - GLUCOSE URINE PRESENT [None]
